FAERS Safety Report 25877081 (Version 1)
Quarter: 2025Q4

REPORT INFORMATION
  Report Type: Spontaneous
  Country: US (occurrence: None)
  Receive Date: 20251002
  Receipt Date: 20251002
  Transmission Date: 20260118
  Serious: Yes (Other)
  Sender: FDA-CTU
  Company Number: None

PATIENT
  Age: 89 Year
  Sex: Male

DRUGS (1)
  1. DUPIXENT [Suspect]
     Active Substance: DUPILUMAB
     Indication: Eczema
     Dosage: 300 MG  EVERY TWO WEEKS SUBCUTANEOUS?
     Route: 058
     Dates: start: 20250707, end: 20251002

REACTIONS (2)
  - Infection [None]
  - Immune system disorder [None]

NARRATIVE: CASE EVENT DATE: 20250825
